FAERS Safety Report 9727425 (Version 1)
Quarter: 2013Q4

REPORT INFORMATION
  Report Type: Spontaneous
  Country: JP (occurrence: JP)
  Receive Date: 20131203
  Receipt Date: 20131203
  Transmission Date: 20140711
  Serious: Yes (Hospitalization)
  Sender: FDA-Public Use
  Company Number: JP-GE HEALTHCARE MEDICAL DIAGNOSTICS-OMPQ-PR-1312S-1373

PATIENT
  Age: 85 Year
  Sex: Male

DRUGS (10)
  1. OMNIPAQUE [Suspect]
     Indication: ABDOMINAL PAIN UPPER
     Route: 042
     Dates: start: 20131111, end: 20131111
  2. OMNIPAQUE [Suspect]
     Indication: PANCREATIC CARCINOMA
  3. OMNIPAQUE [Suspect]
     Indication: DIAGNOSTIC PROCEDURE
  4. RHEUMATREX [Concomitant]
     Route: 065
  5. DIOVAN [Concomitant]
     Route: 065
  6. GASTER [Concomitant]
     Route: 065
  7. SELBEX [Concomitant]
     Route: 065
  8. ETODOLAC [Concomitant]
     Route: 065
  9. FOLIROMIN [Concomitant]
     Route: 065
  10. ALOSENN [Concomitant]
     Route: 065

REACTIONS (5)
  - Oxygen saturation decreased [Recovered/Resolved]
  - Blood pressure decreased [Recovered/Resolved]
  - Feeling hot [Recovered/Resolved]
  - Dyspnoea [Recovered/Resolved]
  - Tremor [Recovered/Resolved]
